FAERS Safety Report 6629922-8 (Version None)
Quarter: 2010Q1

REPORT INFORMATION
  Report Type: 
  Country: None (occurrence: None)
  Receive Date: 20100311
  Receipt Date: 20090710
  Transmission Date: 20100710
  Serious: No
  Sender: FDA-Public Use
  Company Number: US-BIOGENIDEC-2009BI021278

PATIENT
  Age: 65 Year
  Sex: Female

DRUGS (4)
  1. AVONEX [Suspect]
     Indication: MULTIPLE SCLEROSIS
     Route: 030
     Dates: start: 20080124, end: 20080201
  2. AVONEX [Suspect]
     Route: 030
     Dates: start: 20080201, end: 20080201
  3. AVONEX [Suspect]
     Route: 030
     Dates: start: 20080301, end: 20080301
  4. AVONEX [Suspect]
     Route: 030
     Dates: start: 20080301, end: 20080326

REACTIONS (2)
  - CHEST DISCOMFORT [None]
  - PALPITATIONS [None]
